FAERS Safety Report 5216232-9 (Version None)
Quarter: 2007Q1

REPORT INFORMATION
  Report Type: 
  Country: None (occurrence: None)
  Receive Date: 20070123
  Receipt Date: 20070116
  Transmission Date: 20070707
  Serious: Yes (Other)
  Sender: FDA-Public Use
  Company Number: GB-ROXANE LABORATORIES, INC-2007-BP-00683RO

PATIENT
  Sex: Male

DRUGS (6)
  1. DEXAMETHASONE [Suspect]
     Indication: CEREBRAL OEDEMA MANAGEMENT
     Dosage: 12MG QD, 3 WEEKS PRIOR TO SURGERY
  2. FENTANYL TRANSDERMAL SYSTEM [Suspect]
     Indication: ANAESTHESIA
  3. PROPOFOL [Suspect]
     Indication: ANAESTHESIA
  4. VECURONIUM BROMIDE [Suspect]
     Indication: HYPOTONIA
  5. DESFLURANE [Suspect]
     Indication: ANAESTHESIA
     Route: 055
  6. METARAMINOL [Suspect]
     Indication: BLOOD PRESSURE MANAGEMENT

REACTIONS (4)
  - MOOD ALTERED [None]
  - PSYCHOTIC DISORDER [None]
  - SLEEP DISORDER [None]
  - UNWANTED AWARENESS DURING ANAESTHESIA [None]
